FAERS Safety Report 9080715 (Version 1)
Quarter: 2013Q1

REPORT INFORMATION
  Report Type: Report from Study
  Country: US (occurrence: US)
  Receive Date: 20130130
  Receipt Date: 20130130
  Transmission Date: 20140127
  Serious: No
  Sender: FDA-Public Use
  Company Number: US-ABBOTT-12P-163-0965444-00

PATIENT
  Age: 28 Year
  Sex: Female

DRUGS (4)
  1. HUMIRA 40 MG/0.8 ML PEN [Suspect]
     Indication: CROHN^S DISEASE
     Dosage: 4 INJECTIONS IN MIDDLE OF JULY
     Dates: start: 201207, end: 201207
  2. HUMIRA 40 MG/0.8 ML PEN [Suspect]
     Dosage: 2 INJECTIONS 15 DAYS LATER
  3. HUMIRA 40 MG/0.8 ML PEN [Suspect]
     Dosage: 2 INJECTIONS A WEEK
  4. PHENERGAN [Concomitant]
     Indication: NAUSEA
     Dosage: EVERY 4-6 HOURS AS NEEDED

REACTIONS (3)
  - Nausea [Not Recovered/Not Resolved]
  - Gastrointestinal pain [Unknown]
  - Rash papular [Unknown]
